FAERS Safety Report 17489092 (Version 1)
Quarter: 2020Q1

REPORT INFORMATION
  Report Type: Spontaneous
  Country: US (occurrence: US)
  Receive Date: 20200303
  Receipt Date: 20200303
  Transmission Date: 20200409
  Serious: Yes (Other)
  Sender: FDA-Public Use
  Company Number: None

PATIENT
  Sex: Male

DRUGS (1)
  1. METHYLPHENIDATE 54 MG [Suspect]
     Active Substance: METHYLPHENIDATE

REACTIONS (4)
  - Abnormal behaviour [None]
  - Disturbance in attention [None]
  - Anxiety [None]
  - Irritability [None]
